FAERS Safety Report 9437299 (Version 1)
Quarter: 2013Q3

REPORT INFORMATION
  Report Type: Spontaneous
  Country: GB (occurrence: GB)
  Receive Date: 20130802
  Receipt Date: 20130802
  Transmission Date: 20140515
  Serious: Yes (Hospitalization, Other)
  Sender: FDA-Public Use
  Company Number: PHHY2013GB078849

PATIENT
  Age: 84 Year
  Sex: Female

DRUGS (11)
  1. PIOGLITAZONE [Suspect]
     Indication: TYPE 2 DIABETES MELLITUS
     Dosage: 45 MG, QD
     Route: 048
     Dates: start: 20110525
  2. PIOGLITAZONE [Suspect]
     Dosage: 30 MG, UNK
     Route: 048
     Dates: end: 20130607
  3. ASPIRIN [Concomitant]
  4. ATORVASTATIN [Concomitant]
  5. BENDROFLUMETHIAZIDE [Concomitant]
  6. BISOPROLOL [Concomitant]
  7. CO-CODAMOL [Concomitant]
  8. GAVISCON ADVANCE [Concomitant]
  9. RAMIPRIL [Concomitant]
  10. GLICLAZIDE [Concomitant]
  11. CYANOCOBALAMINE [Concomitant]

REACTIONS (5)
  - Lower respiratory tract infection [Unknown]
  - Atrial fibrillation [Unknown]
  - Pulmonary oedema [Unknown]
  - Cardiac failure [Unknown]
  - Dyspnoea [Unknown]
